FAERS Safety Report 6213147-4 (Version None)
Quarter: 2009Q2

REPORT INFORMATION
  Report Type: 
  Country: None (occurrence: None)
  Receive Date: 20090601
  Receipt Date: 20090601
  Transmission Date: 20091009
  Serious: Yes (Hospitalization)
  Sender: FDA-Public Use
  Company Number: None

PATIENT
  Age: 49 Year
  Sex: Male

DRUGS (1)
  1. CISPLATIN [Suspect]
     Indication: CHEMOTHERAPY
     Dosage: 140 MG OTHER IV
     Route: 042
     Dates: start: 20090210

REACTIONS (5)
  - DEHYDRATION [None]
  - DIARRHOEA [None]
  - NAUSEA [None]
  - PAIN [None]
  - VOMITING [None]
